FAERS Safety Report 5787047-8 (Version None)
Quarter: 2008Q2

REPORT INFORMATION
  Report Type: 
  Country: None (occurrence: None)
  Receive Date: 20080625
  Receipt Date: 20080610
  Transmission Date: 20081010
  Serious: Yes (Life-Threatening, Hospitalization)
  Sender: FDA-Public Use
  Company Number: US-BAYER-200820852NA

PATIENT
  Age: 46 Year
  Sex: Female
  Weight: 73 kg

DRUGS (7)
  1. BETASERON [Suspect]
     Indication: RELAPSING-REMITTING MULTIPLE SCLEROSIS
     Dosage: TOTAL DAILY DOSE: 8 MIU
     Route: 058
     Dates: start: 19950101, end: 20060809
  2. BETASERON [Suspect]
     Route: 058
  3. BACLOFEN [Concomitant]
     Dosage: TOTAL DAILY DOSE: 40 MG
     Dates: end: 20060809
  4. GABAPENTIN [Concomitant]
     Dosage: TOTAL DAILY DOSE: 1200 MG
     Dates: end: 20060809
  5. FLUOXETINE HCL [Concomitant]
     Dosage: TOTAL DAILY DOSE: 40 MG
     Dates: end: 20060809
  6. AMITRIPTYLINE HCL [Concomitant]
     Dosage: TOTAL DAILY DOSE: 50 MG
     Dates: end: 20060809
  7. AMANTADINE HCL [Concomitant]
     Dosage: TOTAL DAILY DOSE: 200 MG
     Dates: end: 20060809

REACTIONS (5)
  - AMNESIA [None]
  - COLITIS ISCHAEMIC [None]
  - INJECTION SITE NECROSIS [None]
  - NECROTISING FASCIITIS [None]
  - PSEUDOMEMBRANOUS COLITIS [None]
